FAERS Safety Report 13831086 (Version 2)
Quarter: 2017Q3

REPORT INFORMATION
  Report Type: Report from Study
  Country: FR (occurrence: FR)
  Receive Date: 20170803
  Receipt Date: 20170808
  Transmission Date: 20171127
  Serious: Yes (Hospitalization, Other)
  Sender: FDA-Public Use
  Company Number: FR-BRISTOL-MYERS SQUIBB COMPANY-BMS-2017-067919

PATIENT
  Age: 64 Year
  Sex: Male

DRUGS (1)
  1. NIVOLUMAB [Suspect]
     Active Substance: NIVOLUMAB
     Indication: METASTATIC RENAL CELL CARCINOMA
     Dosage: 320 MG, 1 TIME PER CYCLE
     Route: 042
     Dates: start: 20160425, end: 20170517

REACTIONS (1)
  - Autoimmune dermatitis [Recovered/Resolved with Sequelae]

NARRATIVE: CASE EVENT DATE: 20170612
